FAERS Safety Report 9636702 (Version 1)
Quarter: 2013Q4

REPORT INFORMATION
  Report Type: Spontaneous
  Country: CN (occurrence: CN)
  Receive Date: 20131021
  Receipt Date: 20131021
  Transmission Date: 20140711
  Serious: Yes (Other)
  Sender: FDA-Public Use
  Company Number: CN-JNJFOC-20131007036

PATIENT
  Sex: 0

DRUGS (2)
  1. PARACETAMOL [Suspect]
     Route: 065
  2. PARACETAMOL [Suspect]
     Indication: TENSION HEADACHE
     Route: 065

REACTIONS (4)
  - Anxiety [Unknown]
  - Overdose [Unknown]
  - Medication overuse headache [Unknown]
  - Drug abuse [Unknown]
